FAERS Safety Report 6447016-1 (Version None)
Quarter: 2009Q4

REPORT INFORMATION
  Report Type: 
  Country: None (occurrence: None)
  Receive Date: 20091119
  Receipt Date: 20091116
  Transmission Date: 20100525
  Serious: Yes (Death)
  Sender: FDA-Public Use
  Company Number: US-BRISTOL-MYERS SQUIBB COMPANY-14859565

PATIENT
  Age: 5 Decade
  Sex: Female

DRUGS (1)
  1. IXEMPRA KIT [Suspect]
     Dosage: 3RD LINE MONOTHERAPY;4TH TREATMENT

REACTIONS (1)
  - CARDIO-RESPIRATORY ARREST [None]
